FAERS Safety Report 17053077 (Version 1)
Quarter: 2019Q4

REPORT INFORMATION
  Report Type: Spontaneous
  Country: DE (occurrence: DE)
  Receive Date: 20191120
  Receipt Date: 20191120
  Transmission Date: 20200122
  Serious: Yes (Other)
  Sender: FDA-Public Use
  Company Number: DE-BAYER-2019-202627

PATIENT
  Age: 30 Year
  Sex: Female
  Weight: 65 kg

DRUGS (2)
  1. QLAIRA FILMTABLETTEN [Suspect]
     Active Substance: DIENOGEST\ESTRADIOL VALERATE
     Dosage: 1 DF, QD
     Route: 048
     Dates: start: 20180430, end: 20190223
  2. QLAIRA FILMTABLETTEN [Suspect]
     Active Substance: DIENOGEST\ESTRADIOL VALERATE
     Dosage: 1 DF, QD
     Route: 048
     Dates: start: 2015, end: 2016

REACTIONS (14)
  - Blepharitis [Recovered/Resolved]
  - Irritability [Recovered/Resolved]
  - Seborrhoea [Not Recovered/Not Resolved]
  - Weight increased [Recovered/Resolved]
  - Seborrhoea [None]
  - Hordeolum [Recovered/Resolved]
  - Mood swings [Recovered/Resolved]
  - Irritability [Recovered/Resolved]
  - Mood swings [Recovered/Resolved]
  - Emotional disorder [Recovered/Resolved]
  - Hordeolum [Recovered/Resolved]
  - Blepharitis [Recovered/Resolved]
  - Emotional disorder [Recovered/Resolved]
  - Weight increased [Recovered/Resolved]

NARRATIVE: CASE EVENT DATE: 2015
